FAERS Safety Report 5342040-4 (Version None)
Quarter: 2007Q2

REPORT INFORMATION
  Report Type: 
  Country: None (occurrence: None)
  Receive Date: 20070530
  Receipt Date: 20070530
  Transmission Date: 20071010
  Serious: Yes (Hospitalization)
  Sender: FDA-Public Use
  Company Number: None

PATIENT
  Age: 70 Year
  Sex: Male
  Weight: 70.3 kg

DRUGS (1)
  1. DOXAZOSIN MESYLATE [Suspect]
     Indication: BENIGN PROSTATIC HYPERPLASIA
     Dosage: 12 MG DAILY PO
     Route: 048
     Dates: start: 20070114, end: 20070421

REACTIONS (2)
  - BLOOD CREATININE INCREASED [None]
  - HYPOTENSION [None]
